FAERS Safety Report 20996568 (Version 2)
Quarter: 2022Q2

REPORT INFORMATION
  Report Type: Report from Study
  Country: US (occurrence: US)
  Receive Date: 20220623
  Receipt Date: 20220627
  Transmission Date: 20220721
  Serious: Yes (Other)
  Sender: FDA-Public Use
  Company Number: US-KOREA IPSEN Pharma-2022-17860

PATIENT
  Age: 64 Year
  Sex: Male

DRUGS (1)
  1. SOMATULINE DEPOT [Suspect]
     Active Substance: LANREOTIDE ACETATE
     Indication: Carcinoid tumour of the small bowel
     Dosage: 120MG/ 0.5ML
     Route: 058
     Dates: start: 20210108

REACTIONS (5)
  - Diabetes mellitus [Unknown]
  - Rheumatoid lung [Unknown]
  - Injection site pain [Unknown]
  - Injection site mass [Unknown]
  - Off label use [Unknown]
